FAERS Safety Report 20757895 (Version 13)
Quarter: 2022Q3

REPORT INFORMATION
  Report Type: Report from Study
  Country: CN (occurrence: None)
  Receive Date: 20220427
  Receipt Date: 20220808
  Transmission Date: 20221027
  Serious: Yes (Life-Threatening, Hospitalization)
  Sender: FDA-Public Use
  Company Number: CN-ROCHE-3083544

PATIENT
  Age: 53 Year
  Sex: Male
  Weight: 74.2 kg

DRUGS (39)
  1. TIRAGOLUMAB [Suspect]
     Active Substance: TIRAGOLUMAB
     Indication: Oesophageal squamous cell carcinoma
     Dosage: ON 30/MAR/2022, HE RECEIVED MOST RECENT DOSE 600 MG OF BLINDED TIRAGOLUMAB PRIOR TO SAE
     Route: 042
     Dates: start: 20220126
  2. ATEZOLIZUMAB [Suspect]
     Active Substance: ATEZOLIZUMAB
     Indication: Oesophageal squamous cell carcinoma
     Dosage: ON 30/MAR/2022, HE RECEIVED MOST RECENT DOSE OF BLINDED ATEZOLIZUMAB PRIOR TO SAE.
     Route: 041
     Dates: start: 20220126
  3. DICLOFENAC SODIUM [Concomitant]
     Active Substance: DICLOFENAC SODIUM
     Indication: Analgesic therapy
     Route: 054
     Dates: start: 20150215
  4. DICLOFENAC SODIUM [Concomitant]
     Active Substance: DICLOFENAC SODIUM
     Indication: Oesophagitis
  5. AVELOX [Concomitant]
     Active Substance: MOXIFLOXACIN HYDROCHLORIDE
     Indication: Oesophagitis
     Route: 048
     Dates: start: 20220215, end: 20220420
  6. FAT EMULSION, AMINO ACIDS (17) AND GLUCOSE (11%) [Concomitant]
     Indication: Oesophageal fistula
     Route: 042
     Dates: start: 20220421, end: 20220421
  7. FAT EMULSION, AMINO ACIDS (17) AND GLUCOSE (11%) [Concomitant]
     Route: 042
     Dates: start: 20220422, end: 20220425
  8. FAT EMULSION, AMINO ACIDS (17) AND GLUCOSE (11%) [Concomitant]
     Route: 042
     Dates: start: 20220501, end: 20220511
  9. FAT EMULSION, AMINO ACIDS (17) AND GLUCOSE (11%) [Concomitant]
     Route: 042
     Dates: start: 20220506, end: 20220507
  10. VITAMIN C [Concomitant]
     Active Substance: ASCORBIC ACID
     Indication: Nutritional supplementation
     Route: 042
     Dates: start: 20220420, end: 20220420
  11. VITAMIN C [Concomitant]
     Active Substance: ASCORBIC ACID
     Indication: Prophylaxis
  12. VITAMIN B6 [Concomitant]
     Active Substance: PYRIDOXINE HYDROCHLORIDE
     Indication: Nutritional supplementation
     Route: 042
     Dates: start: 20220420, end: 20220420
  13. VITAMIN B6 [Concomitant]
     Active Substance: PYRIDOXINE HYDROCHLORIDE
     Indication: Prophylaxis
  14. SODIUM POTASSIUM MAGNESIUM CALCIUM AND GLUCOSE [Concomitant]
     Indication: Prophylaxis
     Route: 042
     Dates: start: 20220421, end: 20220421
  15. SODIUM POTASSIUM MAGNESIUM CALCIUM AND GLUCOSE [Concomitant]
     Route: 042
     Dates: start: 20220501, end: 20220501
  16. DICLOFENAC SODIUM [Concomitant]
     Active Substance: DICLOFENAC SODIUM
     Indication: Oesophagitis
     Dosage: 1 OTHER
     Route: 065
     Dates: start: 20220420, end: 20220420
  17. NITROFURAZONE [Concomitant]
     Active Substance: NITROFURAZONE
     Indication: Prophylaxis
     Route: 065
     Dates: start: 20220429, end: 20220429
  18. SODIUM LACTATE [Concomitant]
     Active Substance: SODIUM LACTATE
     Indication: Prophylaxis
     Route: 042
     Dates: start: 20220430, end: 20220430
  19. PANTOPRAZOLE SODIUM [Concomitant]
     Active Substance: PANTOPRAZOLE SODIUM
     Indication: Prophylaxis
     Route: 042
     Dates: start: 20220430, end: 20220430
  20. PANTOPRAZOLE SODIUM [Concomitant]
     Active Substance: PANTOPRAZOLE SODIUM
     Route: 042
     Dates: start: 20220501, end: 20220513
  21. TERLIPRESSIN [Concomitant]
     Active Substance: TERLIPRESSIN
     Indication: Hypoalbuminaemia
     Route: 042
     Dates: start: 20220430, end: 20220507
  22. GLUTATHIONE [Concomitant]
     Active Substance: GLUTATHIONE
     Indication: Prophylaxis
     Dosage: 3 OTHER
     Route: 042
     Dates: start: 20220501, end: 20220501
  23. GLUTATHIONE [Concomitant]
     Active Substance: GLUTATHIONE
     Dosage: 3 OTHER
     Route: 042
     Dates: start: 20220503, end: 20220511
  24. ACYCLOVIR [Concomitant]
     Active Substance: ACYCLOVIR
     Indication: Prophylaxis
     Route: 065
     Dates: start: 20220501, end: 20220501
  25. AMBROXOL HYDROCHLORIDE [Concomitant]
     Active Substance: AMBROXOL HYDROCHLORIDE
     Indication: Productive cough
     Route: 042
     Dates: start: 20220422, end: 20220517
  26. ACETYLCYSTEINE [Concomitant]
     Active Substance: ACETYLCYSTEINE
     Indication: Productive cough
     Route: 048
     Dates: start: 20220422, end: 20220502
  27. LYRICA [Concomitant]
     Active Substance: PREGABALIN
     Indication: Herpes zoster
     Route: 048
     Dates: start: 20220429, end: 20220430
  28. VALACYCLOVIR HYDROCHLORIDE [Concomitant]
     Active Substance: VALACYCLOVIR HYDROCHLORIDE
     Indication: Herpes zoster
     Route: 048
     Dates: start: 20220429, end: 20220501
  29. ETHAMSYLATE [Concomitant]
     Active Substance: ETHAMSYLATE
     Indication: Haemostasis
     Route: 042
     Dates: start: 20220430, end: 20220508
  30. FURACILINUM [Concomitant]
     Indication: Herpes zoster
     Route: 065
     Dates: start: 20220429, end: 20220429
  31. SODIUM CHLORIDE [Concomitant]
     Active Substance: SODIUM CHLORIDE
     Route: 042
     Dates: start: 20220501, end: 20220510
  32. INSULIN NOS [Concomitant]
     Active Substance: INSULIN NOS
     Indication: Nutritional supplementation
     Route: 042
     Dates: start: 20220512, end: 20220516
  33. PANTOPRAZOLE SODIUM [Concomitant]
     Active Substance: PANTOPRAZOLE SODIUM
     Indication: Gastrointestinal disorder prophylaxis
     Route: 042
     Dates: start: 20220514, end: 20220514
  34. RABEPRAZOLE SODIUM [Concomitant]
     Active Substance: RABEPRAZOLE SODIUM
     Indication: Gastrointestinal disorder prophylaxis
     Route: 042
     Dates: start: 20220514, end: 20220515
  35. RABEPRAZOLE SODIUM [Concomitant]
     Active Substance: RABEPRAZOLE SODIUM
     Indication: Gastrointestinal disorder prophylaxis
     Route: 048
     Dates: start: 20220518
  36. GLYCERINE ENEMA [Concomitant]
     Indication: Prophylaxis
     Route: 065
     Dates: start: 20220503, end: 20220503
  37. PROCAINE HYDROCHLORIDE [Concomitant]
     Active Substance: PROCAINE HYDROCHLORIDE
     Indication: Analgesic therapy
     Dosage: LIQUID
     Route: 048
     Dates: start: 20220116
  38. MOXIFLOXACIN HYDROCHLORIDE [Concomitant]
     Active Substance: MOXIFLOXACIN HYDROCHLORIDE
     Indication: Oesophagitis
     Route: 048
     Dates: start: 20220215
  39. AMINO ACIDS, SOURCE UNSPECIFIED [Concomitant]
     Active Substance: AMINO ACIDS, SOURCE UNSPECIFIED
     Indication: Nutritional supplementation
     Route: 042
     Dates: start: 20220512, end: 20220516

REACTIONS (2)
  - Upper gastrointestinal haemorrhage [Recovered/Resolved]
  - Oesophageal fistula [Recovered/Resolved]

NARRATIVE: CASE EVENT DATE: 20220418
